FAERS Safety Report 9655358 (Version 2)
Quarter: 2013Q4

REPORT INFORMATION
  Report Type: Spontaneous
  Country: US (occurrence: US)
  Receive Date: 20131029
  Receipt Date: 20131029
  Transmission Date: 20140711
  Serious: No
  Sender: FDA-Public Use
  Company Number: US-PURDUE-USA-2010-0046430

PATIENT
  Age: 46 Year
  Sex: Female

DRUGS (5)
  1. OXYCONTIN (NDA 22-272) [Suspect]
     Indication: CANCER PAIN
     Dosage: 240 MG, DAILY
     Dates: start: 20100902, end: 2011
  2. OXYCONTIN (NDA 22-272) [Suspect]
     Indication: PAIN
  3. OXYCODONE HCL CR TABLETS (SIMILAR TO NDA 22-272) [Concomitant]
     Indication: PAIN
     Dosage: 30 MG, UNK
     Dates: start: 2011
  4. CLONIDINE [Concomitant]
     Indication: DRUG WITHDRAWAL SYNDROME
  5. PHENERGAN                          /00033001/ [Concomitant]
     Indication: NAUSEA

REACTIONS (11)
  - Drug withdrawal syndrome [Unknown]
  - Wheezing [Unknown]
  - Back pain [Unknown]
  - Pruritus [Unknown]
  - Rash [Unknown]
  - Nausea [Unknown]
  - Vomiting [Unknown]
  - Drug ineffective [Unknown]
  - Dizziness [Unknown]
  - Dehydration [Unknown]
  - Migraine [Unknown]
